FAERS Safety Report 23256282 (Version 1)
Quarter: 2023Q4

REPORT INFORMATION
  Report Type: Spontaneous
  Country: US (occurrence: US)
  Receive Date: 20231204
  Receipt Date: 20231204
  Transmission Date: 20240109
  Serious: Yes (Other)
  Sender: FDA-Public Use
  Company Number: US-PIRAMAL CRITICAL CARE LIMITED-2023-PPL-000604

PATIENT

DRUGS (1)
  1. GABLOFEN [Suspect]
     Active Substance: BACLOFEN
     Indication: Muscle spasticity
     Dosage: 100 MICROGRAM/DAY
     Route: 037

REACTIONS (3)
  - Skin erosion [Recovered/Resolved]
  - Decubitus ulcer [Recovered/Resolved]
  - Drainage [Recovered/Resolved]
